FAERS Safety Report 11201112 (Version 1)
Quarter: 2015Q2

REPORT INFORMATION
  Report Type: Spontaneous
  Country: US (occurrence: US)
  Receive Date: 20150619
  Receipt Date: 20150619
  Transmission Date: 20150821
  Serious: No
  Sender: FDA-Public Use
  Company Number: US-AMGEN-USASP2015058327

PATIENT
  Age: 76 Year
  Sex: Male

DRUGS (3)
  1. ENBREL [Suspect]
     Active Substance: ETANERCEPT
     Indication: DERMATITIS CONTACT
  2. ENBREL [Suspect]
     Active Substance: ETANERCEPT
     Indication: ECZEMA
  3. ENBREL [Suspect]
     Active Substance: ETANERCEPT
     Indication: DERMATITIS ATOPIC
     Dosage: UNK
     Route: 065

REACTIONS (1)
  - Off label use [Not Recovered/Not Resolved]
